FAERS Safety Report 7164190-2 (Version None)
Quarter: 2010Q4

REPORT INFORMATION
  Report Type: 
  Country: None (occurrence: None)
  Receive Date: 20101215
  Receipt Date: 20101208
  Transmission Date: 20110411
  Serious: Yes (Hospitalization)
  Sender: FDA-Public Use
  Company Number: US-MERCK-1012USA01781

PATIENT
  Age: 78 Year
  Sex: Male

DRUGS (6)
  1. JANUVIA [Suspect]
     Indication: DIABETES MELLITUS
     Route: 048
     Dates: start: 20090101, end: 20100917
  2. HYDRALAZINE [Concomitant]
     Route: 065
  3. LYRICA [Concomitant]
     Route: 065
  4. FEXOFENADINE HYDROCHLORIDE [Concomitant]
     Route: 065
  5. VERAPAMIL [Concomitant]
     Route: 065
  6. LIPITOR [Concomitant]
     Route: 065

REACTIONS (3)
  - ABDOMINAL TENDERNESS [None]
  - ADVERSE EVENT [None]
  - DRUG HYPERSENSITIVITY [None]
